FAERS Safety Report 6842287-1 (Version None)
Quarter: 2010Q3

REPORT INFORMATION
  Report Type: 
  Country: None (occurrence: None)
  Receive Date: 20100714
  Receipt Date: 20070724
  Transmission Date: 20110219
  Serious: Yes (Other)
  Sender: FDA-Public Use
  Company Number: US-PFIZER INC-2007062680

PATIENT
  Sex: Female
  Weight: 65.9 kg

DRUGS (5)
  1. CHANTIX [Suspect]
     Dates: start: 20070501, end: 20070601
  2. LEXAPRO [Concomitant]
  3. XANAX [Concomitant]
  4. CRESTOR [Concomitant]
  5. ORAL CONTRACEPTIVE NOS [Concomitant]

REACTIONS (2)
  - ATRIAL FLUTTER [None]
  - VENTRICULAR EXTRASYSTOLES [None]
